FAERS Safety Report 9958600 (Version 1)
Quarter: 2014Q1

REPORT INFORMATION
  Report Type: Spontaneous
  Country: US (occurrence: None)
  Receive Date: 20140124
  Receipt Date: 20140124
  Transmission Date: 20141002
  Serious: Yes (Hospitalization, Other)
  Sender: FDA-Public Use
  Company Number: 2011AP000115

PATIENT
  Age: 73 Year
  Sex: Female

DRUGS (3)
  1. OMEPRAZOLE DELAYED-RELEASE CAPSULES, USP [Suspect]
     Indication: PEPTIC ULCER
  2. LEVOTHYROXINE [Concomitant]
  3. PARACETAMOL W/CAFFEINE [Concomitant]

REACTIONS (1)
  - Tubulointerstitial nephritis [None]
